FAERS Safety Report 9428754 (Version 1)
Quarter: 2013Q3

REPORT INFORMATION
  Report Type: Spontaneous
  Country: GB (occurrence: GB)
  Receive Date: 20130730
  Receipt Date: 20130730
  Transmission Date: 20140515
  Serious: Yes (Hospitalization)
  Sender: FDA-Public Use
  Company Number: GB-ELI_LILLY_AND_COMPANY-GB201307006334

PATIENT
  Sex: Male

DRUGS (1)
  1. STRATTERA [Suspect]
     Indication: CENTRAL NERVOUS SYSTEM STIMULATION
     Dosage: 60 MG, UNKNOWN

REACTIONS (4)
  - Brain injury [Unknown]
  - Dysphagia [Unknown]
  - Incorrect route of drug administration [Unknown]
  - Off label use [Unknown]
